FAERS Safety Report 15957948 (Version 5)
Quarter: 2020Q1

REPORT INFORMATION
  Report Type: Report from Study
  Country: US (occurrence: US)
  Receive Date: 20190213
  Receipt Date: 20200304
  Transmission Date: 20200409
  Serious: Yes (Hospitalization, Other)
  Sender: FDA-Public Use
  Company Number: US-ACTELION-A-NJ2018-177289

PATIENT
  Age: 65 Year
  Sex: Male

DRUGS (48)
  1. AZITHROMYCIN ANHYDROUS. [Concomitant]
     Active Substance: AZITHROMYCIN ANHYDROUS
  2. CLOBETASOL [Concomitant]
     Active Substance: CLOBETASOL
  3. ADEMPAS [Concomitant]
     Active Substance: RIOCIGUAT
     Dosage: 2.5 MG
     Dates: start: 20181101
  4. EMTRICITABINE [Concomitant]
     Active Substance: EMTRICITABINE
  5. FORMOTEROL FUMARATE W/MOMETASONE FUROATE [Concomitant]
     Dosage: UNK
     Dates: start: 20190316
  6. BUMETANIDE. [Concomitant]
     Active Substance: BUMETANIDE
     Dosage: UNK
     Dates: start: 20190316
  7. OPSUMIT [Suspect]
     Active Substance: MACITENTAN
     Indication: PULMONARY ARTERIAL HYPERTENSION
     Dosage: UNK UNK, QD
     Route: 048
     Dates: start: 20180721
  8. OPSUMIT [Suspect]
     Active Substance: MACITENTAN
     Dosage: 10 MG, QD
     Route: 048
  9. SULFAMETHOXAZOLE AND TRIMETHOPRIM [Concomitant]
     Active Substance: SULFAMETHOXAZOLE\TRIMETHOPRIM
  10. FUROSEMIDE. [Concomitant]
     Active Substance: FUROSEMIDE
  11. DOXYCYCLA [Concomitant]
  12. HYLATOPICPLUS [Concomitant]
     Active Substance: EMOLLIENTS
  13. BUPROBAN [Concomitant]
     Active Substance: BUPROPION HYDROCHLORIDE
  14. FOLIC ACID. [Concomitant]
     Active Substance: FOLIC ACID
  15. DUONEB [Concomitant]
     Active Substance: ALBUTEROL SULFATE\IPRATROPIUM BROMIDE
     Dosage: UNK
     Dates: start: 20190316
  16. IBUPROFEN. [Concomitant]
     Active Substance: IBUPROFEN
     Dosage: UNK
     Dates: start: 20190316
  17. LEVAQUIN [Concomitant]
     Active Substance: LEVOFLOXACIN
     Dosage: UNK
     Dates: start: 20190316
  18. PROTONIX [Concomitant]
     Active Substance: PANTOPRAZOLE SODIUM
     Dosage: UNK
     Dates: start: 20190316
  19. ALFUZOSIN [Concomitant]
     Active Substance: ALFUZOSIN
  20. EPINEPHRINE. [Concomitant]
     Active Substance: EPINEPHRINE
  21. ALCLOMETASONE [Concomitant]
     Active Substance: ALCLOMETASONE
  22. LEVOFLOXACIN. [Concomitant]
     Active Substance: LEVOFLOXACIN
  23. BICTEGRAVIR [Concomitant]
     Active Substance: BICTEGRAVIR
     Dosage: UNK
     Dates: start: 20190316
  24. LORATADINE. [Concomitant]
     Active Substance: LORATADINE
     Dosage: UNK
     Dates: start: 20190316
  25. PEPCID [Concomitant]
     Active Substance: FAMOTIDINE
     Dosage: UNK
     Dates: start: 20190316
  26. KETOCONAZOLE. [Concomitant]
     Active Substance: KETOCONAZOLE
  27. CYANOCOBALAMINE [Concomitant]
     Active Substance: CYANOCOBALAMIN
  28. NYSTATIN. [Concomitant]
     Active Substance: NYSTATIN
  29. PRIMAQUINE PHOSPHATE. [Concomitant]
     Active Substance: PRIMAQUINE PHOSPHATE
     Dosage: UNK
     Dates: start: 20190316
  30. SYMBICORT [Concomitant]
     Active Substance: BUDESONIDE\FORMOTEROL FUMARATE DIHYDRATE
  31. COLCHICINE. [Concomitant]
     Active Substance: COLCHICINE
     Dosage: 0.6 MG
  32. CLINDAMYCIN. [Concomitant]
     Active Substance: CLINDAMYCIN
     Dosage: UNK
     Dates: start: 20190316
  33. ONDANSETRON [Concomitant]
     Active Substance: ONDANSETRON
  34. PANTOPRAZOLE [Concomitant]
     Active Substance: PANTOPRAZOLE
  35. FLUOXETINE [Concomitant]
     Active Substance: FLUOXETINE HYDROCHLORIDE
  36. RANITIDINE. [Concomitant]
     Active Substance: RANITIDINE
  37. BENZONATATE. [Concomitant]
     Active Substance: BENZONATATE
  38. METHYLPRED [Concomitant]
     Active Substance: METHYLPREDNISOLONE
  39. LISINOPRIL. [Concomitant]
     Active Substance: LISINOPRIL
  40. METHOTREXATE. [Concomitant]
     Active Substance: METHOTREXATE
  41. FAMOTIDINE. [Concomitant]
     Active Substance: FAMOTIDINE
  42. TENOFOVIR ALAFENAMIDE [Concomitant]
     Active Substance: TENOFOVIR ALAFENAMIDE
  43. VALGANCICLOVIR. [Concomitant]
     Active Substance: VALGANCICLOVIR
  44. FLUTICASONE. [Concomitant]
     Active Substance: FLUTICASONE
  45. BUSPIRONE [Concomitant]
     Active Substance: BUSPIRONE HYDROCHLORIDE
  46. DIPHEN [Concomitant]
     Active Substance: DIPHENHYDRAMINE HYDROCHLORIDE
  47. TRIAMCINOLONE [Concomitant]
     Active Substance: TRIAMCINOLONE
  48. ZOFRAN [Concomitant]
     Active Substance: ONDANSETRON HYDROCHLORIDE
     Dosage: UNK
     Dates: start: 20190316

REACTIONS (12)
  - Pulmonary mass [Unknown]
  - Joint swelling [Unknown]
  - Bronchoscopy [Unknown]
  - Pyrexia [Recovered/Resolved]
  - Rib fracture [Unknown]
  - Hospitalisation [Unknown]
  - Pneumocystis jirovecii pneumonia [Recovered/Resolved]
  - Lung consolidation [Unknown]
  - Autoimmune disorder [Unknown]
  - Peripheral swelling [Unknown]
  - Chills [Not Recovered/Not Resolved]
  - Syncope [Unknown]

NARRATIVE: CASE EVENT DATE: 201807
